FAERS Safety Report 6264882-3 (Version None)
Quarter: 2009Q3

REPORT INFORMATION
  Report Type: 
  Country: None (occurrence: None)
  Receive Date: 20090713
  Receipt Date: 20090701
  Transmission Date: 20100115
  Serious: Yes (Hospitalization)
  Sender: FDA-Public Use
  Company Number: US-BIOGENIDEC-2009BI009464

PATIENT
  Age: 50 Year
  Sex: Female
  Weight: 64 kg

DRUGS (3)
  1. TYSABRI [Suspect]
     Indication: MULTIPLE SCLEROSIS
     Route: 042
     Dates: start: 20071205, end: 20080501
  2. TYSABRI [Suspect]
     Route: 042
     Dates: start: 20090101
  3. IBUPROFEN [Concomitant]
     Indication: OPTIC NEURITIS

REACTIONS (23)
  - AMNESIA [None]
  - BALANCE DISORDER [None]
  - BLINDNESS UNILATERAL [None]
  - DIZZINESS [None]
  - DRUG INEFFECTIVE [None]
  - EPISTAXIS [None]
  - EYE PAIN [None]
  - FAECAL INCONTINENCE [None]
  - FALL [None]
  - FATIGUE [None]
  - GAIT DISTURBANCE [None]
  - HEMIPARESIS [None]
  - JOINT SPRAIN [None]
  - MALAISE [None]
  - MEMORY IMPAIRMENT [None]
  - MULTIPLE SCLEROSIS [None]
  - MULTIPLE SCLEROSIS RELAPSE [None]
  - MUSCULAR WEAKNESS [None]
  - NAUSEA [None]
  - OPTIC NEURITIS [None]
  - POOR VENOUS ACCESS [None]
  - URINARY INCONTINENCE [None]
  - URINARY TRACT INFECTION [None]
